FAERS Safety Report 6236406-8 (Version None)
Quarter: 2009Q2

REPORT INFORMATION
  Report Type: 
  Country: None (occurrence: None)
  Receive Date: 20090619
  Receipt Date: 20090611
  Transmission Date: 20091009
  Serious: Yes (Other)
  Sender: FDA-Public Use
  Company Number: US-ASTRAZENECA-2008UW11069

PATIENT
  Age: 677 Month
  Sex: Female
  Weight: 98.4 kg

DRUGS (2)
  1. SEROQUEL [Suspect]
     Indication: PSYCHOTIC DISORDER
     Route: 048
     Dates: start: 20040101, end: 20050101
  2. ABILIFY [Concomitant]

REACTIONS (9)
  - DEHYDRATION [None]
  - DIABETES MELLITUS [None]
  - DIABETIC BLINDNESS [None]
  - DIABETIC COMA [None]
  - DIABETIC NEUROPATHY [None]
  - DIZZINESS [None]
  - GASTRIC DISORDER [None]
  - GLAUCOMA [None]
  - HYPERTHYROIDISM [None]
